FAERS Safety Report 15735670 (Version 1)
Quarter: 2018Q4

REPORT INFORMATION
  Report Type: Spontaneous
  Country: SE (occurrence: SE)
  Receive Date: 20181218
  Receipt Date: 20181218
  Transmission Date: 20190205
  Serious: Yes (Hospitalization, Other)
  Sender: FDA-Public Use
  Company Number: SE-ASTRAZENECA-2018SF54611

PATIENT
  Sex: Female

DRUGS (2)
  1. CORTICOSTEROID NOS [Concomitant]
     Active Substance: CORTICOSTEROID NOS
     Route: 048
  2. FASENRA [Suspect]
     Active Substance: BENRALIZUMAB
     Route: 058

REACTIONS (8)
  - Arthritis [Recovering/Resolving]
  - Lung infiltration [Unknown]
  - Pyrexia [Unknown]
  - Muscle spasms [Unknown]
  - Bursitis [Recovering/Resolving]
  - Eosinophilic granulomatosis with polyangiitis [Unknown]
  - Arthropathy [Recovered/Resolved]
  - Urticaria [Recovering/Resolving]
